FAERS Safety Report 8047593-3 (Version None)
Quarter: 2012Q1

REPORT INFORMATION
  Report Type: 
  Country: None (occurrence: None)
  Receive Date: 20120116
  Receipt Date: 20110907
  Transmission Date: 20120608
  Serious: Yes (Other)
  Sender: FDA-Public Use
  Company Number: GB-VIIV HEALTHCARE LIMITED-A0961215A

PATIENT
  Sex: Female

DRUGS (2)
  1. NEVIRAPINE [Suspect]
     Indication: ANTIVIRAL TREATMENT
     Dosage: 200MGD PER DAY
     Route: 048
     Dates: start: 20061001, end: 20110501
  2. ABACAVIR SULFATE AND LAMIVUDINE [Suspect]
     Indication: ANTIVIRAL TREATMENT
     Dosage: 1TAB PER DAY
     Route: 048
     Dates: start: 20061001, end: 20110501

REACTIONS (2)
  - ECTOPIC PREGNANCY [None]
  - MATERNAL EXPOSURE DURING PREGNANCY [None]
